FAERS Safety Report 10908240 (Version 1)
Quarter: 2015Q1

REPORT INFORMATION
  Report Type: Report from Study
  Country: US (occurrence: US)
  Receive Date: 20150312
  Receipt Date: 20150312
  Transmission Date: 20150721
  Serious: Yes (Death)
  Sender: FDA-Public Use
  Company Number: US-BAXTER-2015BAX013757

PATIENT

DRUGS (2)
  1. GAMMAGARD S/D [Suspect]
     Active Substance: HUMAN IMMUNOGLOBULIN G
     Indication: CLOSTRIDIUM DIFFICILE INFECTION
     Route: 042
  2. GAMMAGARD S/D [Suspect]
     Active Substance: HUMAN IMMUNOGLOBULIN G
     Indication: OFF LABEL USE

REACTIONS (1)
  - Death [Fatal]
